FAERS Safety Report 10261599 (Version 1)
Quarter: 2014Q2

REPORT INFORMATION
  Report Type: Spontaneous
  Country: US (occurrence: US)
  Receive Date: 20140626
  Receipt Date: 20140626
  Transmission Date: 20141212
  Serious: No
  Sender: FDA-Public Use
  Company Number: US-ASTRAZENECA-2014SE40763

PATIENT
  Age: 61 Year
  Sex: Female
  Weight: 81.6 kg

DRUGS (9)
  1. NEXIUM [Suspect]
     Indication: GASTRIC DISORDER
     Route: 048
     Dates: end: 2001
  2. NEXIUM [Suspect]
     Indication: GASTRIC DISORDER
     Route: 048
     Dates: start: 2001
  3. NEXIUM [Suspect]
     Indication: GASTRIC DISORDER
     Dosage: 40MG TWO TIMES A DAY GENERIC
     Route: 048
  4. NEXIUM [Suspect]
     Indication: GASTRIC DISORDER
     Dosage: FOUR TIMES A DAY GENERIC
     Route: 048
  5. LOSEC [Suspect]
     Indication: ABDOMINAL DISCOMFORT
     Route: 048
     Dates: start: 1989, end: 1994
  6. BUSCOPAN [Concomitant]
     Indication: OESOPHAGEAL SPASM
     Dosage: UNKNOWN UNK
     Route: 048
  7. TEMAZEPAM [Concomitant]
     Indication: INSOMNIA
     Route: 048
     Dates: start: 2004
  8. TYLENOL WITH CODEINE [Concomitant]
     Indication: ARTHRITIS
     Dosage: 300-60MG TID
     Route: 048
     Dates: start: 2010
  9. TYLENOL WITH CODEINE [Concomitant]
     Indication: FIBROMYALGIA
     Dosage: 300-60MG TID
     Route: 048
     Dates: start: 2010

REACTIONS (7)
  - Fibromyalgia [Not Recovered/Not Resolved]
  - Arthritis [Not Recovered/Not Resolved]
  - Oesophageal spasm [Not Recovered/Not Resolved]
  - Dyspepsia [Not Recovered/Not Resolved]
  - Off label use [Not Recovered/Not Resolved]
  - Intentional product misuse [Not Recovered/Not Resolved]
  - Drug ineffective [Recovered/Resolved]
